FAERS Safety Report 7349347-X (Version None)
Quarter: 2011Q1

REPORT INFORMATION
  Report Type: 
  Country: None (occurrence: None)
  Receive Date: 20110304
  Receipt Date: 20110225
  Transmission Date: 20110831
  Serious: Yes (Other)
  Sender: FDA-Public Use
  Company Number: GB-GDP-11410062

PATIENT
  Age: 73 Year
  Sex: Female

DRUGS (2)
  1. METVIX (METHYL AMINOLEVULINATE HYDROCHLORIDE) (16%) [Suspect]
     Indication: BASAL CELL CARCINOMA
     Dosage: 1 DF TOPICAL
     Route: 061
     Dates: start: 20101022, end: 20101022
  2. METVIX (METHYL AMINOLEVULINATE HYDROCHLORIDE) (16%) [Suspect]
     Indication: BASAL CELL CARCINOMA
     Dosage: 1 DF TOPICAL
     Route: 061
     Dates: start: 20101029, end: 20101029

REACTIONS (1)
  - DEEP VEIN THROMBOSIS [None]
